FAERS Safety Report 18267068 (Version 1)
Quarter: 2020Q3

REPORT INFORMATION
  Report Type: Other
  Country: KR (occurrence: KR)
  Receive Date: 20200915
  Receipt Date: 20200915
  Transmission Date: 20201103
  Serious: Yes (Death, Hospitalization)
  Sender: FDA-Public Use
  Company Number: KR-VISTA PHARMACEUTICALS INC.-2090730

PATIENT
  Age: 33 Year
  Sex: Male

DRUGS (4)
  1. CORTICOSTEROIDS [Concomitant]
     Active Substance: CORTICOSTEROID NOS
     Route: 065
  2. FLUCONAZOLE. [Concomitant]
     Active Substance: FLUCONAZOLE
     Route: 065
  3. HAART [Concomitant]
     Route: 065
  4. SULFAMETHOXAZOLE AND TRIMETHOPRIM [Suspect]
     Active Substance: SULFAMETHOXAZOLE\TRIMETHOPRIM
     Indication: PNEUMOCYSTIS JIROVECII PNEUMONIA
     Route: 065

REACTIONS (6)
  - Pancytopenia [Fatal]
  - Pneumomediastinum [Fatal]
  - Hypoxia [Fatal]
  - Bone marrow necrosis [Fatal]
  - Treatment failure [Fatal]
  - Lung cyst [Fatal]
